FAERS Safety Report 11857835 (Version 1)
Quarter: 2015Q4

REPORT INFORMATION
  Report Type: Spontaneous
  Country: US (occurrence: US)
  Receive Date: 20151222
  Receipt Date: 20151222
  Transmission Date: 20160305
  Serious: Yes (Other)
  Sender: FDA-Public Use
  Company Number: US-BIOGEN-2015BI00164014

PATIENT
  Sex: Male

DRUGS (1)
  1. TYSABRI [Suspect]
     Active Substance: NATALIZUMAB
     Indication: MULTIPLE SCLEROSIS
     Route: 042
     Dates: start: 20120518, end: 20130318

REACTIONS (3)
  - Vomiting [Recovered/Resolved]
  - Seizure [Recovered/Resolved]
  - Central nervous system lesion [Recovered/Resolved]
